FAERS Safety Report 18494399 (Version 1)
Quarter: 2020Q4

REPORT INFORMATION
  Report Type: Other
  Country: CN (occurrence: CN)
  Receive Date: 20201112
  Receipt Date: 20201112
  Transmission Date: 20210114
  Serious: Yes (Other)
  Sender: FDA-Public Use
  Company Number: CN-ROCHE-2709316

PATIENT

DRUGS (2)
  1. CAPECITABINE. [Suspect]
     Active Substance: CAPECITABINE
     Indication: OESOPHAGEAL CARCINOMA
     Dosage: 30 MINUTES AFTER MEALS ORALLY, FOR 3 CONSECUTIVE WEEKS, FOLLOWED BY 1 WEEK OF DISCONTINUATION, 4 WEE
     Route: 065
  2. APATINIB [Suspect]
     Active Substance: APATINIB
     Indication: OESOPHAGEAL CARCINOMA
     Route: 048

REACTIONS (8)
  - Palmar-plantar erythrodysaesthesia syndrome [Unknown]
  - Myelosuppression [Unknown]
  - Radiation oesophagitis [Unknown]
  - Hypertension [Unknown]
  - Proteinuria [Unknown]
  - Gastrointestinal disorder [Unknown]
  - Off label use [Unknown]
  - Intentional product use issue [Unknown]
